FAERS Safety Report 6831798-0 (Version None)
Quarter: 2010Q3

REPORT INFORMATION
  Report Type: 
  Country: None (occurrence: None)
  Receive Date: 20100712
  Receipt Date: 20100527
  Transmission Date: 20110219
  Serious: No
  Sender: FDA-Public Use
  Company Number: A0865102A

PATIENT
  Sex: Male

DRUGS (3)
  1. LEXIVA [Suspect]
     Indication: PRODUCT USED FOR UNKNOWN INDICATION
     Route: 065
  2. TRUVADA [Concomitant]
  3. RITONAVIR [Concomitant]

REACTIONS (1)
  - ERECTILE DYSFUNCTION [None]
